FAERS Safety Report 21161035 (Version 1)
Quarter: 2022Q3

REPORT INFORMATION
  Report Type: Spontaneous
  Country: US (occurrence: US)
  Receive Date: 20220802
  Receipt Date: 20220802
  Transmission Date: 20221027
  Serious: Yes (Other)
  Sender: FDA-Public Use
  Company Number: US-NOVARTISPH-NVSC2022US174056

PATIENT
  Age: 6 Decade
  Sex: Female

DRUGS (4)
  1. OXALIPLATIN [Suspect]
     Active Substance: OXALIPLATIN
     Indication: Pancreatic carcinoma metastatic
     Dosage: UNK UNK, CYCLIC (7 CYCLES) (EVERY 14 DAYS)
     Route: 065
  2. FLUOROURACIL [Concomitant]
     Active Substance: FLUOROURACIL
     Indication: Pancreatic carcinoma metastatic
     Dosage: UNK UNK, CYCLIC (EVERY 14 DAYS)
     Route: 065
  3. LEUCOVORIN [Concomitant]
     Active Substance: LEUCOVORIN
     Indication: Pancreatic carcinoma metastatic
     Dosage: UNK UNK, CYCLIC (EVERY 14 DAYS)
     Route: 065
  4. IRINOTECAN [Concomitant]
     Active Substance: IRINOTECAN
     Indication: Pancreatic carcinoma metastatic
     Dosage: UNK UNK, CYCLIC (EVERY 14 DAYS)
     Route: 065

REACTIONS (2)
  - Neuropathy peripheral [Unknown]
  - Product use in unapproved indication [Unknown]
